FAERS Safety Report 25836032 (Version 1)
Quarter: 2025Q3

REPORT INFORMATION
  Report Type: Spontaneous
  Country: US (occurrence: None)
  Receive Date: 20250922
  Receipt Date: 20250922
  Transmission Date: 20251021
  Serious: Yes (Hospitalization)
  Sender: FDA-CTU
  Company Number: None

PATIENT
  Age: 79 Year
  Sex: Male

DRUGS (1)
  1. NUPLAZID [Suspect]
     Active Substance: PIMAVANSERIN TARTRATE
     Indication: Mental disorder
     Dosage: FREQUENCY : DAILY;?
     Route: 048

REACTIONS (8)
  - Choking [None]
  - Oesophageal motility disorder [None]
  - Unresponsive to stimuli [None]
  - Blood sodium decreased [None]
  - Blood potassium decreased [None]
  - Blood phosphorus decreased [None]
  - Weight decreased [None]
  - Hypophagia [None]

NARRATIVE: CASE EVENT DATE: 20250903
